FAERS Safety Report 12194467 (Version 1)
Quarter: 2016Q1

REPORT INFORMATION
  Report Type: Spontaneous
  Country: RO (occurrence: RO)
  Receive Date: 20160321
  Receipt Date: 20160321
  Transmission Date: 20160526
  Serious: Yes (Death, Other)
  Sender: FDA-Public Use
  Company Number: PHHY2016RO036430

PATIENT
  Age: 54 Year
  Sex: Male

DRUGS (3)
  1. IMATINIB [Suspect]
     Active Substance: IMATINIB
     Indication: CHRONIC MYELOID LEUKAEMIA
     Dosage: 400 MG, QD
     Route: 065
  2. RITUXIMAB [Suspect]
     Active Substance: RITUXIMAB
     Indication: CHRONIC MYELOID LEUKAEMIA
     Dosage: FIVE CYCLES
     Route: 065
  3. HYDROXYUREA. [Suspect]
     Active Substance: HYDROXYUREA
     Indication: CHRONIC MYELOID LEUKAEMIA
     Route: 065

REACTIONS (7)
  - Lymphadenopathy [Unknown]
  - Malignant neoplasm progression [Recovering/Resolving]
  - Thrombocytopenia [Unknown]
  - Splenomegaly [Unknown]
  - Neutropenia [Fatal]
  - Chronic lymphocytic leukaemia [Recovering/Resolving]
  - Anaemia [Unknown]
